FAERS Safety Report 4526604-3 (Version None)
Quarter: 2004Q4

REPORT INFORMATION
  Report Type: 
  Country: None (occurrence: None)
  Receive Date: 20041214
  Receipt Date: 20040924
  Transmission Date: 20050328
  Serious: Yes (Hospitalization, Other)
  Sender: FDA-Public Use
  Company Number: JP-NOVOPROD-239521

PATIENT
  Age: 73 Year
  Sex: Male
  Weight: 55 kg

DRUGS (9)
  1. PENFILL 30R CHU [Suspect]
     Indication: DIABETES MELLITUS
     Dosage: 20 IU, QD
     Dates: start: 20031201, end: 20040109
  2. PENFILL 30R CHU [Suspect]
     Dosage: 24 IU, QD
     Dates: start: 20040110, end: 20040924
  3. ENALAPRIL [Concomitant]
     Indication: MYOCARDIAL ISCHAEMIA
     Route: 048
     Dates: start: 20031116
  4. BAYASPIRIN [Concomitant]
     Indication: MYOCARDIAL ISCHAEMIA
     Route: 048
     Dates: start: 20031116
  5. MUCOSTA [Concomitant]
     Indication: MYOCARDIAL ISCHAEMIA
     Route: 048
     Dates: start: 20031116
  6. BASEN [Concomitant]
     Indication: DIABETES MELLITUS
     Route: 048
     Dates: start: 20031116
  7. ITOROL [Concomitant]
     Indication: MYOCARDIAL ISCHAEMIA
     Route: 048
     Dates: start: 20031116, end: 20040924
  8. NIKORANMART [Concomitant]
     Indication: MYOCARDIAL ISCHAEMIA
     Route: 048
     Dates: start: 20031116, end: 20040924
  9. PANALDINE [Concomitant]
     Indication: MYOCARDIAL ISCHAEMIA
     Route: 048
     Dates: start: 20031116, end: 20040521

REACTIONS (9)
  - DRUG INTERACTION [None]
  - FALL [None]
  - HEAD INJURY [None]
  - HYPOTENSION [None]
  - INJECTION SITE ERYTHEMA [None]
  - INJECTION SITE RASH [None]
  - LOSS OF CONSCIOUSNESS [None]
  - SUBARACHNOID HAEMORRHAGE [None]
  - SUBDURAL HAEMATOMA [None]
